FAERS Safety Report 14703131 (Version 1)
Quarter: 2018Q2

REPORT INFORMATION
  Report Type: Spontaneous
  Country: FR (occurrence: FR)
  Receive Date: 20180402
  Receipt Date: 20180402
  Transmission Date: 20180711
  Serious: Yes (Other)
  Sender: FDA-Public Use
  Company Number: FR-MERCK KGAA-2044893

PATIENT
  Age: 51 Year
  Sex: Female

DRUGS (1)
  1. NOVOTHYROX [Suspect]
     Active Substance: LEVOTHYROXINE SODIUM
     Indication: PRODUCT USED FOR UNKNOWN INDICATION

REACTIONS (26)
  - Asocial behaviour [None]
  - Headache [None]
  - Malaise [None]
  - Asthenia [None]
  - Personality change [None]
  - Memory impairment [None]
  - Alopecia [None]
  - Muscle spasms [None]
  - Impatience [None]
  - Swelling [None]
  - Fatigue [None]
  - Pain in extremity [None]
  - Social avoidant behaviour [None]
  - Anger [None]
  - Suicidal ideation [None]
  - Feeling cold [None]
  - Apathy [None]
  - Blindness [None]
  - Pain [None]
  - Loss of personal independence in daily activities [None]
  - Ageusia [None]
  - Disturbance in attention [None]
  - Peripheral swelling [None]
  - Muscular weakness [None]
  - Arrhythmia [None]
  - Loss of employment [None]

NARRATIVE: CASE EVENT DATE: 201707
